FAERS Safety Report 9416639 (Version 1)
Quarter: 2013Q3

REPORT INFORMATION
  Report Type: Spontaneous
  Country: FR (occurrence: None)
  Receive Date: 20130722
  Receipt Date: 20130722
  Transmission Date: 20140515
  Serious: Yes (Other)
  Sender: FDA-Public Use
  Company Number: ACO_37356_2013

PATIENT
  Age: 59 Year
  Sex: Female

DRUGS (3)
  1. FAMPYRA (DALFAMPRIDINE) TABLET, 10MG [Suspect]
     Indication: GAIT DISTURBANCE
     Route: 048
     Dates: start: 20130523, end: 20130625
  2. MIANSERINE (MIANSERIN HYDROCHLORIDE) [Concomitant]
  3. METHYLPREDNISOLONE (METHYLPREDNISOLONE) [Concomitant]

REACTIONS (2)
  - Epilepsy [None]
  - Face injury [None]
